FAERS Safety Report 8504805-7 (Version None)
Quarter: 2012Q3

REPORT INFORMATION
  Report Type: 
  Country: None (occurrence: None)
  Receive Date: 20120712
  Receipt Date: 20120703
  Transmission Date: 20120928
  Serious: No
  Sender: FDA-Public Use
  Company Number: US-BIOGENIDEC-2012BI023954

PATIENT
  Sex: Female

DRUGS (1)
  1. AVONEX [Suspect]
     Indication: MULTIPLE SCLEROSIS
     Route: 030
     Dates: start: 20120619

REACTIONS (5)
  - PANIC ATTACK [None]
  - DEPRESSED MOOD [None]
  - MUSCLE SPASMS [None]
  - PAIN IN EXTREMITY [None]
  - MIGRAINE [None]
